FAERS Safety Report 5490800-1 (Version None)
Quarter: 2007Q4

REPORT INFORMATION
  Report Type: 
  Country: None (occurrence: None)
  Receive Date: 20071019
  Receipt Date: 20071009
  Transmission Date: 20080405
  Serious: Yes (Hospitalization)
  Sender: FDA-Public Use
  Company Number: JP-JNJFOC-20070903976

PATIENT
  Sex: Male

DRUGS (7)
  1. LEVOFLOXACIN [Suspect]
     Route: 048
  2. LEVOFLOXACIN [Suspect]
     Indication: BRONCHITIS
     Route: 048
  3. TOPOTECIN [Suspect]
     Route: 041
  4. TOPOTECIN [Suspect]
     Indication: SMALL CELL LUNG CANCER STAGE UNSPECIFIED
     Route: 041
  5. LOXONIN [Suspect]
     Indication: DRUG USE FOR UNKNOWN INDICATION
     Route: 048
  6. CALONAL [Suspect]
     Indication: DRUG USE FOR UNKNOWN INDICATION
     Route: 048
  7. RANDA [Suspect]
     Indication: SMALL CELL LUNG CANCER STAGE UNSPECIFIED
     Route: 041

REACTIONS (1)
  - RHABDOMYOLYSIS [None]
